FAERS Safety Report 4354987-6 (Version None)
Quarter: 2004Q2

REPORT INFORMATION
  Report Type: 
  Country: None (occurrence: None)
  Receive Date: 20040504
  Receipt Date: 20040420
  Transmission Date: 20050107
  Serious: Yes (Death)
  Sender: FDA-Public Use
  Company Number: CERZ-10556

PATIENT
  Age: 70 Year
  Sex: Female

DRUGS (6)
  1. CEREZYME [Suspect]
     Indication: GAUCHER'S DISEASE
     Dosage: 2600 UNITS Q2WKS IV
     Route: 042
     Dates: start: 20030301, end: 20040201
  2. ACCUPRIL [Concomitant]
  3. HYDROCHLOROTHIAZIDE [Concomitant]
  4. FOSAMAX [Concomitant]
  5. AMBIEN [Concomitant]
  6. CELEXA [Concomitant]

REACTIONS (1)
  - SUBDURAL HAEMATOMA [None]
